FAERS Safety Report 16289009 (Version 1)
Quarter: 2019Q2

REPORT INFORMATION
  Report Type: Spontaneous
  Country: US (occurrence: US)
  Receive Date: 20190509
  Receipt Date: 20190509
  Transmission Date: 20190711
  Serious: Yes (Other)
  Sender: FDA-Public Use
  Company Number: US-BIO PRODUCTS LABORATORY LTD-2066826

PATIENT
  Age: 62 Year
  Sex: Female

DRUGS (1)
  1. GENERIC IVIG [Suspect]
     Active Substance: HUMAN IMMUNOGLOBULIN G
     Route: 042

REACTIONS (2)
  - Injection site thrombosis [Recovered/Resolved]
  - Off label use [Recovered/Resolved]
